FAERS Safety Report 25782866 (Version 4)
Quarter: 2025Q4

REPORT INFORMATION
  Report Type: Spontaneous
  Country: US (occurrence: US)
  Receive Date: 20250909
  Receipt Date: 20251014
  Transmission Date: 20260117
  Serious: No
  Sender: SANDOZ
  Company Number: US-SANDOZ-SDZ2025US064280

PATIENT
  Sex: Female

DRUGS (1)
  1. ALBUTEROL SULFATE [Suspect]
     Active Substance: ALBUTEROL SULFATE
     Indication: Product used for unknown indication
     Dosage: UNK (ALBUTEROL SULFATE INHALATION AEROSOL 90 MCG) (ALBUTEROL SULFATE HFA TMAI PRODUCT STRENGTH 90MCG
     Route: 065

REACTIONS (4)
  - Device defective [Unknown]
  - Device delivery system issue [Unknown]
  - Drug delivery system issue [Unknown]
  - Circumstance or information capable of leading to medication error [Unknown]
